FAERS Safety Report 8455931-2 (Version None)
Quarter: 2012Q2

REPORT INFORMATION
  Report Type: 
  Country: None (occurrence: None)
  Receive Date: 20120621
  Receipt Date: 20120620
  Transmission Date: 20120825
  Serious: Yes (Death, Other)
  Sender: FDA-Public Use
  Company Number: PHHY2012US052778

PATIENT
  Age: 65 Year
  Sex: Male

DRUGS (1)
  1. HEPARIN [Suspect]

REACTIONS (4)
  - CYANOSIS [None]
  - HEPARIN-INDUCED THROMBOCYTOPENIA [None]
  - PERIPHERAL COLDNESS [None]
  - PULSE ABSENT [None]
